FAERS Safety Report 9803680 (Version 2)
Quarter: 2016Q2

REPORT INFORMATION
  Report Type: Spontaneous
  Country: US (occurrence: US)
  Receive Date: 20140108
  Receipt Date: 20160420
  Transmission Date: 20160815
  Serious: No
  Sender: FDA-Public Use
  Company Number: US-GLAXOSMITHKLINE-A1023081A

PATIENT
  Age: 68 Year
  Sex: Female

DRUGS (17)
  1. NEXIUM [Concomitant]
     Active Substance: ESOMEPRAZOLE MAGNESIUM
  2. CARVEDILOL. [Concomitant]
     Active Substance: CARVEDILOL
  3. TRIAMTERENE-HCTZ [Concomitant]
     Active Substance: HYDROCHLOROTHIAZIDE\TRIAMTERENE
  4. LOVAZA [Suspect]
     Active Substance: OMEGA-3-ACID ETHYL ESTERS
     Indication: BLOOD CHOLESTEROL INCREASED
     Route: 048
     Dates: start: 2005, end: 201304
  5. VITAMIN E [Concomitant]
     Active Substance: .ALPHA.-TOCOPHEROL
  6. CRESTOR [Concomitant]
     Active Substance: ROSUVASTATIN CALCIUM
  7. CLONAZEPAM. [Concomitant]
     Active Substance: CLONAZEPAM
  8. LEVOCETIRIZINE [Concomitant]
     Active Substance: LEVOCETIRIZINE
  9. LISINOPRIL. [Concomitant]
     Active Substance: LISINOPRIL
  10. MAG OXIDE [Concomitant]
     Active Substance: MAGNESIUM OXIDE
  11. TIZANIDINE. [Concomitant]
     Active Substance: TIZANIDINE
  12. ZINC [Concomitant]
     Active Substance: ZINC\ZINC CHLORIDE
  13. LYRICA [Concomitant]
     Active Substance: PREGABALIN
  14. SYNTHROID [Concomitant]
     Active Substance: LEVOTHYROXINE SODIUM
  15. ASPIRIN. [Concomitant]
     Active Substance: ASPIRIN
  16. LOVAZA [Suspect]
     Active Substance: OMEGA-3-ACID ETHYL ESTERS
     Dosage: 4 G, QD
     Dates: start: 2007
  17. MELOXICAM. [Concomitant]
     Active Substance: MELOXICAM

REACTIONS (7)
  - Malaise [Recovered/Resolved]
  - Oedema peripheral [Recovering/Resolving]
  - Irritable bowel syndrome [Recovered/Resolved]
  - Medication residue present [Recovered/Resolved]
  - Product quality issue [Recovered/Resolved]
  - Abdominal pain upper [Recovered/Resolved]
  - Pyrexia [Recovered/Resolved]

NARRATIVE: CASE EVENT DATE: 201304
